FAERS Safety Report 8517737-5 (Version None)
Quarter: 2012Q3

REPORT INFORMATION
  Report Type: 
  Country: None (occurrence: None)
  Receive Date: 20120712
  Receipt Date: 20120712
  Transmission Date: 20120928
  Serious: Yes (Other)
  Sender: FDA-Public Use
  Company Number: None

PATIENT
  Sex: Female
  Weight: 66.6788 kg

DRUGS (1)
  1. CHANTIX [Suspect]
     Indication: SMOKING CESSATION THERAPY
     Dosage: CHANTIX BID PO 2 MG 1 WK USE
     Route: 048

REACTIONS (5)
  - AFFECT LABILITY [None]
  - FEAR [None]
  - FEELING ABNORMAL [None]
  - SELF INJURIOUS BEHAVIOUR [None]
  - CRYING [None]
